FAERS Safety Report 8609870-4 (Version None)
Quarter: 2012Q3

REPORT INFORMATION
  Report Type: 
  Country: None (occurrence: None)
  Receive Date: 20120821
  Receipt Date: 20120817
  Transmission Date: 20120928
  Serious: Yes (Hospitalization)
  Sender: FDA-Public Use
  Company Number: DK-ROCHE-1046761

PATIENT
  Sex: Female
  Weight: 74 kg

DRUGS (23)
  1. VINCRISTINE [Suspect]
     Route: 042
     Dates: start: 20120305
  2. NEULASTA [Suspect]
     Indication: DIFFUSE LARGE B-CELL LYMPHOMA
     Route: 058
     Dates: start: 20120210, end: 20120210
  3. ACYCLOVIR [Concomitant]
     Indication: INFECTION
     Route: 048
     Dates: start: 20120207
  4. ONDANSETRON [Concomitant]
     Indication: NAUSEA
     Route: 048
     Dates: start: 20120207, end: 20120208
  5. DOXORUBICIN HCL [Suspect]
     Indication: DIFFUSE LARGE B-CELL LYMPHOMA
     Route: 042
     Dates: start: 20120207
  6. NEULASTA [Suspect]
     Route: 058
     Dates: start: 20120223
  7. TRAMADOL HCL [Concomitant]
     Indication: BACK PAIN
     Dates: start: 20120525
  8. VINCRISTINE [Suspect]
     Indication: DIFFUSE LARGE B-CELL LYMPHOMA
     Route: 042
     Dates: start: 20120207
  9. PREDNISONE TAB [Suspect]
     Dosage: LAST DOSE PRIOR TO SAE WAS ON 9/MAR/2012
     Route: 048
     Dates: start: 20120305
  10. PREDNISONE TAB [Suspect]
     Route: 048
     Dates: start: 20120227, end: 20120227
  11. PREDNISONE TAB [Suspect]
     Route: 048
     Dates: start: 20120220, end: 20120224
  12. LANSOPRAZOLE [Concomitant]
     Route: 048
     Dates: start: 20120305
  13. MABTHERA [Suspect]
     Dosage: LAST DOSE PRIOR TO SAE WAS ON 13/FEB/2012
     Route: 042
     Dates: start: 20120305
  14. MABTHERA [Suspect]
     Indication: DIFFUSE LARGE B-CELL LYMPHOMA
     Route: 042
     Dates: start: 20120207
  15. MABTHERA [Suspect]
     Route: 042
     Dates: start: 20120213
  16. CYCLOPHOSPHAMIDE [Suspect]
     Indication: DIFFUSE LARGE B-CELL LYMPHOMA
     Route: 042
     Dates: start: 20120207
  17. PREDNISONE TAB [Suspect]
     Indication: DIFFUSE LARGE B-CELL LYMPHOMA
     Route: 048
     Dates: start: 20120207
  18. NEULASTA [Suspect]
     Route: 058
     Dates: start: 20120308
  19. ACYCLOVIR [Concomitant]
     Dosage: DRUG NAME: ACICLODAN
     Route: 048
     Dates: start: 20120220, end: 20120618
  20. CYCLOPHOSPHAMIDE [Suspect]
     Dosage: 05/MAR/2012: LAST DOSE PRIOE TO ONSET OF SAE
     Route: 042
     Dates: start: 20120305
  21. DOXORUBICIN HCL [Suspect]
     Route: 042
     Dates: start: 20120305
  22. LANSOPRAZOLE [Concomitant]
     Route: 048
     Dates: start: 20120113
  23. BACTRIM [Concomitant]
     Indication: INFECTION
     Dosage: DOSE: 400/80 MG
     Route: 048
     Dates: start: 20120207

REACTIONS (2)
  - PULMONARY EMBOLISM [None]
  - BACK PAIN [None]
